FAERS Safety Report 9947839 (Version 1)
Quarter: 2014Q1

REPORT INFORMATION
  Report Type: Report from Study
  Country: US (occurrence: US)
  Receive Date: 20140303
  Receipt Date: 20140303
  Transmission Date: 20141002
  Serious: No
  Sender: FDA-Public Use
  Company Number: US-ABBVIE-13P-163-1062006-00

PATIENT
  Age: 39 Year
  Sex: Male
  Weight: 145.28 kg

DRUGS (3)
  1. HUMIRA [Suspect]
     Indication: PSORIASIS
     Dates: start: 201009
  2. VENTOLIN [Concomitant]
     Indication: PRODUCT USED FOR UNKNOWN INDICATION
     Route: 055
  3. CLARITIN [Concomitant]
     Indication: ASTHMA

REACTIONS (4)
  - Nasopharyngitis [Unknown]
  - Nasopharyngitis [Unknown]
  - Psoriasis [Unknown]
  - Psoriasis [Unknown]
